FAERS Safety Report 7021112-2 (Version None)
Quarter: 2010Q3

REPORT INFORMATION
  Report Type: 
  Country: None (occurrence: None)
  Receive Date: 20100929
  Receipt Date: 20100917
  Transmission Date: 20110219
  Serious: Yes (Other)
  Sender: FDA-Public Use
  Company Number: PHFR2010GB04210

PATIENT
  Sex: Female

DRUGS (1)
  1. SYNTOMETRINE [Suspect]

REACTIONS (1)
  - HAEMORRHAGE [None]
